FAERS Safety Report 8874885 (Version 1)
Quarter: 2012Q4

REPORT INFORMATION
  Report Type: 
  Country: US (occurrence: US)
  Receive Date: 20121023
  Receipt Date: 20121023
  Transmission Date: 20130627
  Serious: No
  Sender: FDA-Public Use
  Company Number: US-ROCHE-GNE276006

PATIENT
  Sex: Female

DRUGS (2)
  1. RAPTIVA [Suspect]
     Indication: PSORIASIS
     Dosage: 75 mg, 1/week
     Route: 058
     Dates: start: 200607
  2. RAPTIVA [Suspect]
     Dosage: unknown
     Route: 058
     Dates: start: 20090121

REACTIONS (3)
  - Psoriasis [Not Recovered/Not Resolved]
  - Influenza [Recovering/Resolving]
  - Sinusitis [Recovering/Resolving]
